FAERS Safety Report 8736332 (Version 2)
Quarter: 2012Q4

REPORT INFORMATION
  Report Type: 
  Country: MX (occurrence: MX)
  Receive Date: 20120822
  Receipt Date: 20121015
  Transmission Date: 20130627
  Serious: Yes (Death, Hospitalization)
  Sender: FDA-Public Use
  Company Number: MX-ABBOTT-12P-107-0968862-00

PATIENT
  Age: 54 Year
  Sex: Male
  Weight: 61 kg

DRUGS (5)
  1. HUMIRA [Suspect]
     Indication: RHEUMATOID ARTHRITIS
     Route: 058
     Dates: start: 201204, end: 20120714
  2. PARACETAMOL [Concomitant]
     Indication: PAIN
     Dosage: Every 6 hours
     Route: 048
     Dates: end: 20120714
  3. DICLOFENAC [Concomitant]
     Indication: RHEUMATOID ARTHRITIS
     Dosage: Every 8 hours
     Route: 048
     Dates: end: 20120714
  4. OMEPRAZOLE [Concomitant]
     Indication: GASTRITIS PROPHYLAXIS
     Route: 048
     Dates: end: 20120714
  5. SULINDAC [Concomitant]
     Indication: RHEUMATOID ARTHRITIS
     Dosage: Every 8 hours
     Route: 048
     Dates: end: 20120714

REACTIONS (7)
  - Hiccups [Fatal]
  - Weight decreased [Fatal]
  - Gastrooesophageal reflux disease [Fatal]
  - Hepatic cirrhosis [Fatal]
  - Localised intraabdominal fluid collection [Unknown]
  - Nausea [Unknown]
  - Vomiting [Unknown]
